FAERS Safety Report 17534463 (Version 1)
Quarter: 2020Q1

REPORT INFORMATION
  Report Type: Spontaneous
  Country: RU (occurrence: RU)
  Receive Date: 20200312
  Receipt Date: 20200312
  Transmission Date: 20200409
  Serious: No
  Sender: FDA-Public Use
  Company Number: RU-B.BRAUN MEDICAL INC.-2081564

PATIENT
  Age: 12 Month
  Sex: Male
  Weight: 5 kg

DRUGS (6)
  1. FENISTIL [Concomitant]
     Active Substance: DIMETHINDENE
  2. CEFTRIAXONE. [Concomitant]
     Active Substance: CEFTRIAXONE
  3. DEXTROSE INJECTIONS USP 0264-7510-00 0264-7510-20 [Suspect]
     Active Substance: DEXTROSE
  4. COLECALCIFEROL [Concomitant]
     Active Substance: CHOLECALCIFEROL
  5. INTESTI-BACTERIOFAG [Concomitant]
  6. WATER FOR INJECTIONS [Concomitant]
     Active Substance: WATER

REACTIONS (1)
  - Rash [None]
